FAERS Safety Report 9559461 (Version 2)
Quarter: 2014Q1

REPORT INFORMATION
  Report Type: Spontaneous
  Country: IT (occurrence: IT)
  Receive Date: 20130927
  Receipt Date: 20140205
  Transmission Date: 20141002
  Serious: Yes (Other)
  Sender: FDA-Public Use
  Company Number: IT-ACCORD-019528

PATIENT
  Age: 74 Year
  Sex: Male
  Weight: 70 kg

DRUGS (4)
  1. GEMCITABINE [Suspect]
     Indication: LUNG NEOPLASM MALIGNANT
     Route: 042
     Dates: start: 20130116
  2. RANIDIL [Concomitant]
     Route: 042
     Dates: start: 20130116, end: 20130314
  3. ONDANSETRON [Concomitant]
     Indication: PROPHYLAXIS OF NAUSEA AND VOMITING
     Dosage: ONDANSETRON HYDROCHLORIDE DIHYDRATE
     Route: 042
     Dates: start: 20130116, end: 20130314
  4. SOLDESAM [Concomitant]
     Indication: PROPHYLAXIS OF NAUSEA AND VOMITING
     Dosage: DEXAMETHASONE SODIUM PHOSPHATE
     Route: 042
     Dates: start: 20130116, end: 20130314

REACTIONS (10)
  - Local swelling [Unknown]
  - Dyspnoea [Unknown]
  - Nausea [Unknown]
  - Vomiting [Unknown]
  - Back pain [Unknown]
  - Conjunctivitis [Unknown]
  - Musculoskeletal pain [Unknown]
  - Asthenia [Unknown]
  - Constipation [Unknown]
  - Local swelling [Unknown]
